FAERS Safety Report 4758652-2 (Version None)
Quarter: 2005Q3

REPORT INFORMATION
  Report Type: 
  Country: None (occurrence: None)
  Receive Date: 20050901
  Receipt Date: 20050714
  Transmission Date: 20060218
  Serious: Yes (Hospitalization)
  Sender: FDA-Public Use
  Company Number: GBWYE833915JUL05

PATIENT
  Sex: Female

DRUGS (7)
  1. ENBREL [Suspect]
     Indication: RHEUMATOID ARTHRITIS
     Route: 058
     Dates: start: 20041116, end: 20050311
  2. METHOTREXATE [Suspect]
     Route: 048
     Dates: start: 19991019, end: 20050311
  3. FOLIC ACID [Concomitant]
     Dates: start: 19991019, end: 20050311
  4. LANSOPRAZOLE [Concomitant]
  5. DICLOFENAC [Concomitant]
  6. PREDNISOLONE [Concomitant]
  7. FERROUS SULFATE [Concomitant]

REACTIONS (1)
  - ALVEOLITIS ALLERGIC [None]
